FAERS Safety Report 8479671-9 (Version None)
Quarter: 2012Q2

REPORT INFORMATION
  Report Type: 
  Country: None (occurrence: None)
  Receive Date: 20120629
  Receipt Date: 20120615
  Transmission Date: 20120825
  Serious: Yes (Other)
  Sender: FDA-Public Use
  Company Number: CHPA2012US013049

PATIENT
  Age: 82 Year
  Sex: Female

DRUGS (3)
  1. EXCEDRIN TENSION HEADACHE CAPLETS [Suspect]
     Indication: HEADACHE
     Dosage: 1 TO 2 DF, PER DAY PRN
     Route: 048
  2. COUMADIN [Concomitant]
     Dosage: UNK, UNK
     Route: 048
  3. AMBIEN [Concomitant]
     Indication: INSOMNIA
     Dosage: UNK, UNK
     Route: 048

REACTIONS (5)
  - UNDERDOSE [None]
  - URINARY TRACT INFECTION [None]
  - BRONCHITIS [None]
  - DIZZINESS [None]
  - THERAPEUTIC RESPONSE UNEXPECTED [None]
